FAERS Safety Report 26006120 (Version 1)
Quarter: 2025Q4

REPORT INFORMATION
  Report Type: Spontaneous
  Country: EU (occurrence: EU)
  Receive Date: 20251106
  Receipt Date: 20251106
  Transmission Date: 20260118
  Serious: Yes (Other)
  Sender: JOHNSON AND JOHNSON
  Company Number: None

PATIENT
  Age: 30 Year
  Sex: Male
  Weight: 60 kg

DRUGS (3)
  1. STELARA [Suspect]
     Active Substance: USTEKINUMAB
     Indication: Colitis ulcerative
     Dosage: STELARA 90 MG EVERY 8 WEEKS
     Route: 058
     Dates: start: 20220502, end: 20251023
  2. STELARA [Suspect]
     Active Substance: USTEKINUMAB
  3. MESALAMINE [Concomitant]
     Active Substance: MESALAMINE
     Indication: Colitis ulcerative
     Route: 048
     Dates: start: 2017

REACTIONS (2)
  - Herpes zoster oticus [Recovering/Resolving]
  - Bell^s palsy [Recovering/Resolving]

NARRATIVE: CASE EVENT DATE: 20251024
